FAERS Safety Report 7589775-0 (Version None)
Quarter: 2011Q3

REPORT INFORMATION
  Report Type: 
  Country: None (occurrence: None)
  Receive Date: 20110705
  Receipt Date: 20110620
  Transmission Date: 20111222
  Serious: Yes (Hospitalization)
  Sender: FDA-Public Use
  Company Number: NL-WATSON-2011-09705

PATIENT
  Age: 51 Year
  Sex: Female

DRUGS (3)
  1. DIPYRIDAMOLE [Suspect]
     Indication: SUICIDE ATTEMPT
     Dosage: 200 MG, UNK
     Route: 048
  2. TEMAZEPAM [Suspect]
     Indication: SUICIDE ATTEMPT
     Dosage: 20 MG, UNK
     Route: 048
  3. OXAZEPAM [Suspect]
     Indication: SUICIDE ATTEMPT
     Dosage: 10 MG, UNK
     Route: 048

REACTIONS (4)
  - ATRIOVENTRICULAR BLOCK FIRST DEGREE [None]
  - INTENTIONAL OVERDOSE [None]
  - SOMNOLENCE [None]
  - SUICIDE ATTEMPT [None]
